FAERS Safety Report 17692300 (Version 3)
Quarter: 2020Q2

REPORT INFORMATION
  Report Type: Spontaneous
  Country: US (occurrence: US)
  Receive Date: 20200422
  Receipt Date: 20200428
  Transmission Date: 20200714
  Serious: Yes (Other)
  Sender: FDA-Public Use
  Company Number: US-PFIZER INC-2020145985

PATIENT
  Age: 58 Year
  Sex: Female
  Weight: 79.37 kg

DRUGS (2)
  1. SERTRALINE HCL [Suspect]
     Active Substance: SERTRALINE HYDROCHLORIDE
     Indication: ANXIETY
  2. SERTRALINE HCL [Suspect]
     Active Substance: SERTRALINE HYDROCHLORIDE
     Indication: DEPRESSION
     Dosage: 100 MG, 2X/DAY
     Dates: start: 2015

REACTIONS (4)
  - Lethargy [Recovering/Resolving]
  - Insomnia [Recovering/Resolving]
  - Suicidal ideation [Unknown]
  - Depression [Recovering/Resolving]
